FAERS Safety Report 6035745-3 (Version None)
Quarter: 2009Q1

REPORT INFORMATION
  Report Type: 
  Country: None (occurrence: None)
  Receive Date: 20090113
  Receipt Date: 20090107
  Transmission Date: 20090719
  Serious: Yes (Other)
  Sender: FDA-Public Use
  Company Number: BR-PFIZER INC-2008051283

PATIENT

DRUGS (4)
  1. XALATAN [Suspect]
     Indication: GLAUCOMA
     Dosage: UNK
     Dates: start: 20051201
  2. XALACOM [Suspect]
     Dosage: UNK
     Route: 047
  3. ALL OTHER THERAPEUTIC PRODUCTS [Concomitant]
     Indication: HEADACHE
  4. AMINOPHYLLINE [Concomitant]
     Indication: DYSPNOEA
     Route: 048
     Dates: start: 20070601

REACTIONS (3)
  - CATARACT [None]
  - DRUG INEFFECTIVE [None]
  - VISUAL ACUITY REDUCED [None]
